FAERS Safety Report 22148662 (Version 1)
Quarter: 2023Q1

REPORT INFORMATION
  Report Type: Spontaneous
  Country: US (occurrence: US)
  Receive Date: 20230328
  Receipt Date: 20230328
  Transmission Date: 20230418
  Serious: No
  Sender: FDA-Public Use
  Company Number: US-BAUSCHBL-2023BNL002362

PATIENT
  Age: 61 Year
  Sex: Female

DRUGS (1)
  1. PROLENSA [Suspect]
     Active Substance: BROMFENAC SODIUM
     Indication: Postoperative care
     Route: 047
     Dates: start: 20230206

REACTIONS (2)
  - Instillation site irritation [Unknown]
  - Instillation site dryness [Unknown]

NARRATIVE: CASE EVENT DATE: 20230201
